FAERS Safety Report 24011739 (Version 1)
Quarter: 2024Q2

REPORT INFORMATION
  Report Type: Spontaneous
  Country: JP (occurrence: None)
  Receive Date: 20240625
  Receipt Date: 20240625
  Transmission Date: 20240716
  Serious: Yes (Life-Threatening)
  Sender: FDA-Public Use
  Company Number: 2024A139352

PATIENT
  Age: 69 Year
  Sex: Male

DRUGS (6)
  1. IMFINZI [Suspect]
     Active Substance: DURVALUMAB
     Indication: Bile duct cancer
     Dosage: DOSE UNKNOWN, 80% DOSE, SCHEDULE OF DOSING ON DAYS 1 AND 8 ON AND OFF ON DAY 15
     Route: 041
  2. IMFINZI [Suspect]
     Active Substance: DURVALUMAB
     Indication: Bile duct cancer
     Dosage: DOSE UNKNOWN, 80% DOSE, SCHEDULE OF DOSING ON DAYS 1 AND 8 ON AND OFF ON DAY 15
     Route: 041
  3. GEMCITABINE HYDROCHLORIDE [Concomitant]
     Active Substance: GEMCITABINE HYDROCHLORIDE
     Indication: Bile duct cancer
     Dosage: DOSE UNKNOWN, 80% DOSE, SCHEDULE OF DOSING ON DAYS 1 AND 8 ON AND OFF ON DAY 15
     Route: 065
  4. GEMCITABINE HYDROCHLORIDE [Concomitant]
     Active Substance: GEMCITABINE HYDROCHLORIDE
     Indication: Bile duct cancer
     Dosage: DOSE UNKNOWN, 70% DOSE, SCHEDULE OF DOSING ON DAYS 1 AND 8 ON AND OFF ON DAY 15
     Route: 065
  5. CISPLATIN [Concomitant]
     Active Substance: CISPLATIN
     Indication: Bile duct cancer
     Dosage: DOSE UNKNOWN, 80% DOSE, SCHEDULE OF DOSING ON DAYS 1 AND 8 ON AND OFF ON DAY 15
  6. CISPLATIN [Concomitant]
     Active Substance: CISPLATIN
     Indication: Bile duct cancer
     Dosage: DOSE UNKNOWN, 70% DOSE, SCHEDULE OF DOSING ON DAYS 1 AND 8 ON AND OFF ON DAY 15

REACTIONS (2)
  - Neutrophil count decreased [Unknown]
  - Platelet count decreased [Unknown]
